FAERS Safety Report 19972697 (Version 2)
Quarter: 2022Q1

REPORT INFORMATION
  Report Type: Spontaneous
  Country: FR (occurrence: FR)
  Receive Date: 20211020
  Receipt Date: 20220310
  Transmission Date: 20220423
  Serious: Yes (Death, Other)
  Sender: FDA-Public Use
  Company Number: FR-ASTELLAS-2021US038994

PATIENT
  Age: 71 Year
  Sex: Male

DRUGS (9)
  1. REGADENOSON [Suspect]
     Active Substance: REGADENOSON
     Indication: Cardiac stress test
     Dosage: UNK UNK, SINGLE
     Route: 065
     Dates: start: 20210927, end: 20210927
  2. REGADENOSON [Suspect]
     Active Substance: REGADENOSON
     Indication: Cardiac stress test
     Dosage: UNK UNK, SINGLE
     Route: 065
     Dates: start: 20210927, end: 20210927
  3. REGADENOSON [Suspect]
     Active Substance: REGADENOSON
     Indication: Cardiac stress test
     Dosage: UNK UNK, SINGLE
     Route: 065
     Dates: start: 20210927, end: 20210927
  4. REGADENOSON [Suspect]
     Active Substance: REGADENOSON
     Indication: Cardiac stress test
     Dosage: UNK UNK, SINGLE
     Route: 065
     Dates: start: 20210927, end: 20210927
  5. REGADENOSON [Suspect]
     Active Substance: REGADENOSON
     Indication: Myocardial ischaemia
  6. REGADENOSON [Suspect]
     Active Substance: REGADENOSON
     Indication: Myocardial ischaemia
  7. REGADENOSON [Suspect]
     Active Substance: REGADENOSON
     Indication: Myocardial ischaemia
  8. REGADENOSON [Suspect]
     Active Substance: REGADENOSON
     Indication: Myocardial ischaemia
  9. OXYGEN [Concomitant]
     Active Substance: OXYGEN
     Indication: Oxygen therapy
     Dosage: UNK UNK, UNKNOWN FREQ.
     Route: 065

REACTIONS (2)
  - Chronic obstructive pulmonary disease [Fatal]
  - General physical health deterioration [Fatal]

NARRATIVE: CASE EVENT DATE: 20210927
